FAERS Safety Report 25218199 (Version 1)
Quarter: 2025Q2

REPORT INFORMATION
  Report Type: Spontaneous
  Country: US (occurrence: US)
  Receive Date: 20250421
  Receipt Date: 20250421
  Transmission Date: 20250717
  Serious: No
  Sender: ROCHE
  Company Number: US-ROCHE-10000261526

PATIENT
  Age: 82 Year
  Sex: Male

DRUGS (4)
  1. BEVACIZUMAB [Suspect]
     Active Substance: BEVACIZUMAB
     Indication: Gastrointestinal angiodysplasia
     Route: 042
  2. BEVACIZUMAB [Suspect]
     Active Substance: BEVACIZUMAB
     Route: 042
  3. THALIDOMIDE [Concomitant]
     Active Substance: THALIDOMIDE
     Indication: Gastrointestinal angiodysplasia
  4. OCTREOTIDE [Concomitant]
     Active Substance: OCTREOTIDE
     Indication: Gastrointestinal angiodysplasia

REACTIONS (2)
  - Off label use [Unknown]
  - No adverse event [Unknown]
